FAERS Safety Report 9263810 (Version 1)
Quarter: 2013Q2

REPORT INFORMATION
  Report Type: Other
  Country: DE (occurrence: DE)
  Receive Date: 20130430
  Receipt Date: 20130430
  Transmission Date: 20140414
  Serious: Yes (Death)
  Sender: FDA-Public Use
  Company Number: DE-WATSON-2013-07156

PATIENT
  Age: 91 Year
  Sex: Female

DRUGS (18)
  1. CIPROFLOXACIN HYDROCHLORIDE (UNKNOWN) [Suspect]
     Indication: PRODUCT USED FOR UNKNOWN INDICATION
     Dosage: 500 MG, DAILY
     Route: 048
     Dates: start: 20120914, end: 20120922
  2. TRUXAL /00012102/ [Suspect]
     Indication: PRODUCT USED FOR UNKNOWN INDICATION
     Dosage: 60 MG, DAILY
     Route: 048
     Dates: start: 20120922
  3. TRUXAL /00012102/ [Suspect]
     Dosage: 40- 90 MG, DAILY
     Route: 048
     Dates: start: 20120915, end: 20120921
  4. TAVOR /00273201/ [Suspect]
     Indication: PRODUCT USED FOR UNKNOWN INDICATION
     Dosage: 2 MG, DAILY
     Route: 048
     Dates: start: 20120920, end: 20120922
  5. TAVOR /00273201/ [Suspect]
     Dosage: 3 MG, DAILY
     Route: 048
     Dates: start: 20120914, end: 20120919
  6. ZYPREXA [Suspect]
     Indication: PRODUCT USED FOR UNKNOWN INDICATION
     Dosage: 10MG 1 DAY
     Route: 048
     Dates: start: 20120921, end: 20120922
  7. ZYPREXA [Suspect]
     Dosage: 5 MG, DAILY
     Route: 048
     Dates: start: 20120917, end: 20120920
  8. RAMIPRIL [Concomitant]
     Indication: PRODUCT USED FOR UNKNOWN INDICATION
     Dosage: 2.5 MG, DAILY
     Route: 048
     Dates: end: 20120922
  9. BISOPROLOL [Concomitant]
     Indication: PRODUCT USED FOR UNKNOWN INDICATION
     Dosage: 2.5 MG, DAILY
     Route: 048
     Dates: end: 20120913
  10. ALLOPURINOL [Concomitant]
     Indication: PRODUCT USED FOR UNKNOWN INDICATION
     Dosage: 150 MG, DAILY
     Route: 048
     Dates: end: 20120922
  11. OMEPRAZOL                          /00661201/ [Concomitant]
     Indication: PRODUCT USED FOR UNKNOWN INDICATION
     Dosage: 20 MG, DAILY
     Route: 048
     Dates: end: 20120911
  12. PANTOPRAZOL [Concomitant]
     Indication: PRODUCT USED FOR UNKNOWN INDICATION
     Dosage: 20 MG, DAILY
     Route: 048
     Dates: start: 20120912, end: 20120922
  13. METAMIZOL                          /06276702/ [Concomitant]
     Indication: PRODUCT USED FOR UNKNOWN INDICATION
     Dosage: 1500 MG, DAILY
     Route: 048
     Dates: end: 20120922
  14. ACETYLSALICYLSAEURE [Concomitant]
     Indication: PRODUCT USED FOR UNKNOWN INDICATION
     Dosage: 100 MG, DAILY
     Route: 048
     Dates: end: 20120922
  15. INSULIN [Concomitant]
     Indication: PRODUCT USED FOR UNKNOWN INDICATION
     Dosage: 18 IU, DAILY
     Route: 058
     Dates: end: 20120922
  16. BISOPROLOL [Concomitant]
     Indication: PRODUCT USED FOR UNKNOWN INDICATION
     Dosage: 5 MG, DAILY
     Route: 048
     Dates: start: 20120914, end: 20120922
  17. FUROSEMID                          /00032601/ [Concomitant]
     Indication: PRODUCT USED FOR UNKNOWN INDICATION
     Dosage: 80 MG, DAILY
     Route: 048
     Dates: end: 20120911
  18. FUROSEMID                          /00032601/ [Concomitant]
     Dosage: 120MG 1 DAY
     Route: 048
     Dates: start: 20120912, end: 20120922

REACTIONS (10)
  - Death [Fatal]
  - Cardiac failure acute [None]
  - Restlessness [None]
  - Aggression [None]
  - Tachycardia [None]
  - Agitation [None]
  - Respiratory disorder [None]
  - Infected skin ulcer [None]
  - Atrial fibrillation [None]
  - Cardiomegaly [None]
